FAERS Safety Report 15648132 (Version 3)
Quarter: 2018Q4

REPORT INFORMATION
  Report Type: Spontaneous
  Country: JP (occurrence: JP)
  Receive Date: 20181122
  Receipt Date: 20181213
  Transmission Date: 20190205
  Serious: Yes (Other)
  Sender: FDA-Public Use
  Company Number: JP-009507513-1811JPN009167

PATIENT
  Age: 82 Year
  Sex: Female

DRUGS (4)
  1. GLIBENCLAMID [Concomitant]
     Active Substance: GLYBURIDE
     Dosage: 5 MILLIGRAM/DAY
     Route: 048
  2. GLACTIV [Suspect]
     Active Substance: SITAGLIPTIN
     Indication: TYPE 2 DIABETES MELLITUS
     Dosage: 50 MILLIGRAM, EVERYDAY
     Route: 048
  3. PREDNISOLONE. [Suspect]
     Active Substance: PREDNISOLONE
     Indication: POLYMYALGIA RHEUMATICA
     Dosage: 10 MILLIGRAM, EVERYDAY
     Route: 065
  4. METFORMIN HYDROCHLORIDE. [Concomitant]
     Active Substance: METFORMIN HYDROCHLORIDE
     Dosage: 500 MILLIGRAM, UNK
     Route: 048

REACTIONS (2)
  - Polymyalgia rheumatica [Recovered/Resolved]
  - Blood glucose increased [Recovered/Resolved]
